FAERS Safety Report 8147595-2 (Version None)
Quarter: 2012Q1

REPORT INFORMATION
  Report Type: 
  Country: None (occurrence: None)
  Receive Date: 20120218
  Receipt Date: 20120214
  Transmission Date: 20120608
  Serious: Yes (Other)
  Sender: FDA-Public Use
  Company Number: US-ASTRAZENECA-2012SE10349

PATIENT
  Age: 62 Year
  Sex: Male
  Weight: 107.5 kg

DRUGS (7)
  1. COLACE [Concomitant]
     Route: 048
  2. NORCO [Concomitant]
     Dosage: 5-325 MG AS REQUIRED
  3. LISINOPRIL [Suspect]
     Route: 048
  4. CRESTOR [Suspect]
     Route: 048
  5. METOPROLOL SUCCINATE [Suspect]
     Route: 048
  6. ASPIRIN [Concomitant]
     Route: 048
  7. UROXATRAL [Concomitant]
     Indication: PAIN
     Route: 048
     Dates: end: 20120213

REACTIONS (9)
  - COUGH [None]
  - PERICARDIAL RUB [None]
  - INCISION SITE PAIN [None]
  - SNEEZING [None]
  - CORONARY ARTERY DISEASE [None]
  - INCISION SITE COMPLICATION [None]
  - PROSTATOMEGALY [None]
  - HYPERLIPIDAEMIA [None]
  - ESSENTIAL HYPERTENSION [None]
